FAERS Safety Report 24566452 (Version 1)
Quarter: 2024Q4

REPORT INFORMATION
  Report Type: Spontaneous
  Country: US (occurrence: None)
  Receive Date: 20241029
  Receipt Date: 20241029
  Transmission Date: 20250115
  Serious: No
  Sender: Public
  Company Number: None

PATIENT
  Age: 66 Year
  Sex: Male
  Weight: 64 kg

DRUGS (2)
  1. TERBINAFINE HYDROCHLORIDE [Suspect]
     Active Substance: TERBINAFINE HYDROCHLORIDE
     Indication: Fungal infection
     Dosage: FREQUENCY : DAILY;?
     Route: 048
     Dates: start: 20240618, end: 20240623
  2. ATORVASTATIN [Suspect]
     Active Substance: ATORVASTATIN

REACTIONS (2)
  - Rhabdomyolysis [None]
  - Therapy interrupted [None]

NARRATIVE: CASE EVENT DATE: 20240623
